FAERS Safety Report 4933485-2 (Version None)
Quarter: 2006Q1

REPORT INFORMATION
  Report Type: 
  Country: None (occurrence: None)
  Receive Date: 20060306
  Receipt Date: 20051001
  Transmission Date: 20060701
  Serious: Yes (Hospitalization)
  Sender: FDA-Public Use
  Company Number: US-MERCK-0510USA01849

PATIENT
  Age: 65 Year
  Sex: Female
  Weight: 86 kg

DRUGS (14)
  1. ZOLOFT [Concomitant]
     Route: 065
  2. CEFADROXIL [Concomitant]
     Route: 065
  3. ATACAND [Concomitant]
     Route: 065
  4. PLAVIX [Concomitant]
     Route: 065
  5. VIOXX [Suspect]
     Indication: RHEUMATOID ARTHRITIS
     Route: 048
  6. VIOXX [Suspect]
     Route: 048
  7. VIOXX [Suspect]
     Route: 048
     Dates: start: 20000916
  8. VIOXX [Suspect]
     Route: 048
     Dates: start: 20001120
  9. VIOXX [Suspect]
     Route: 048
     Dates: start: 20030920
  10. SYNTHROID [Concomitant]
     Route: 065
  11. GLUCOPHAGE [Concomitant]
     Route: 065
  12. PREMARIN [Concomitant]
     Route: 065
  13. HYZAAR [Concomitant]
     Route: 048
  14. LOTREL [Concomitant]
     Route: 065

REACTIONS (16)
  - ARRHYTHMIA [None]
  - CARDIAC DISORDER [None]
  - CARDIAC FAILURE [None]
  - CARDIOVASCULAR DISORDER [None]
  - CEREBRAL ATROPHY [None]
  - CEREBROVASCULAR ACCIDENT [None]
  - CHEST PAIN [None]
  - DEPRESSION [None]
  - INJURY [None]
  - LIPOMA [None]
  - MYOCARDIAL INFARCTION [None]
  - ORGAN FAILURE [None]
  - OVERDOSE [None]
  - PATELLA FRACTURE [None]
  - PULMONARY EMBOLISM [None]
  - THROMBOSIS [None]
